FAERS Safety Report 11198291 (Version 2)
Quarter: 2015Q3

REPORT INFORMATION
  Report Type: Spontaneous
  Country: CA (occurrence: CA)
  Receive Date: 20150618
  Receipt Date: 20150702
  Transmission Date: 20151125
  Serious: Yes (Hospitalization, Other)
  Sender: FDA-Public Use
  Company Number: CA-BEH-2015051738

PATIENT
  Age: 66 Year
  Sex: Female
  Weight: 51.5 kg

DRUGS (12)
  1. PRIVIGEN [Suspect]
     Active Substance: HUMAN IMMUNOGLOBULIN G
     Dates: start: 20150330
  2. CAL-VIT [Concomitant]
     Dosage: 500-400
  3. TYLENOL [Concomitant]
     Active Substance: ACETAMINOPHEN
     Route: 048
  4. NEUPOGEN [Concomitant]
     Active Substance: FILGRASTIM
     Dosage: S/C
  5. PRIVIGEN [Suspect]
     Active Substance: HUMAN IMMUNOGLOBULIN G
     Indication: HYPOGAMMAGLOBULINAEMIA
     Dosage: 200 ML/ 4/4 ADMINISTERED: 0-30 MIN:14ML/H, 30-60 MIN: 28 ML/H, END OF TREATMENT: 175 ML/H
     Route: 042
     Dates: start: 20150601, end: 20150601
  6. CRESTOR [Concomitant]
     Active Substance: ROSUVASTATIN CALCIUM
     Route: 048
  7. DECADRON [Concomitant]
     Active Substance: DEXAMETHASONE
     Route: 042
  8. PRIVIGEN [Suspect]
     Active Substance: HUMAN IMMUNOGLOBULIN G
     Dates: start: 20150420
  9. EFFEXOR LA [Concomitant]
     Route: 048
  10. ANCEF [Concomitant]
     Active Substance: CEFAZOLIN SODIUM
     Route: 042
  11. PRIVIGEN [Suspect]
     Active Substance: HUMAN IMMUNOGLOBULIN G
     Indication: NON-HODGKIN^S LYMPHOMA
     Dates: start: 20150511
  12. ALLOPURINOL. [Concomitant]
     Active Substance: ALLOPURINOL
     Route: 048

REACTIONS (11)
  - Hypertension [Recovered/Resolved]
  - Night sweats [Recovered/Resolved]
  - Localised oedema [Recovered/Resolved]
  - Tachycardia [Recovered/Resolved]
  - Lymphadenopathy [Recovered/Resolved]
  - Superinfection [Recovered/Resolved]
  - Pyrexia [Recovered/Resolved]
  - Erythema [Recovered/Resolved]
  - Lymphadenitis [Recovered/Resolved]
  - Cellulitis [Recovered/Resolved]
  - Chills [Recovered/Resolved]

NARRATIVE: CASE EVENT DATE: 20150606
